FAERS Safety Report 16805863 (Version 1)
Quarter: 2019Q3

REPORT INFORMATION
  Report Type: Report from Study
  Country: US (occurrence: US)
  Receive Date: 20190913
  Receipt Date: 20190913
  Transmission Date: 20191005
  Serious: No
  Sender: FDA-Public Use
  Company Number: US-AGIOS-1908US01322

PATIENT

DRUGS (3)
  1. TIBSOVO [Suspect]
     Active Substance: IVOSIDENIB
     Indication: CHONDROSARCOMA
  2. TIBSOVO [Suspect]
     Active Substance: IVOSIDENIB
     Indication: CARTILAGE NEOPLASM
  3. TIBSOVO [Suspect]
     Active Substance: IVOSIDENIB
     Indication: BONE CANCER
     Dosage: 250 MILLIGRAM, 2 TABLETS (500 MG), QD
     Route: 048
     Dates: start: 20190418

REACTIONS (4)
  - Wound dehiscence [Not Recovered/Not Resolved]
  - Pain [Not Recovered/Not Resolved]
  - Diarrhoea [Not Recovered/Not Resolved]
  - Off label use [Unknown]

NARRATIVE: CASE EVENT DATE: 2019
